FAERS Safety Report 12433794 (Version 2)
Quarter: 2016Q4

REPORT INFORMATION
  Report Type: Spontaneous
  Country: GB (occurrence: GB)
  Receive Date: 20160603
  Receipt Date: 20161021
  Transmission Date: 20170207
  Serious: Yes (Other)
  Sender: FDA-Public Use
  Company Number: ALCN2016GB003867

PATIENT
  Age: 52 Year
  Sex: Female
  Weight: 56.24 kg

DRUGS (2)
  1. MAXIDEX [Suspect]
     Active Substance: DEXAMETHASONE
     Indication: EYE LASER SURGERY
  2. MAXIDEX [Suspect]
     Active Substance: DEXAMETHASONE
     Indication: VITREOUS FLOATERS
     Dosage: 1 GTT, QID
     Route: 047
     Dates: start: 20160418

REACTIONS (1)
  - Insomnia [Recovered/Resolved]

NARRATIVE: CASE EVENT DATE: 20160516
